FAERS Safety Report 25139336 (Version 1)
Quarter: 2025Q1

REPORT INFORMATION
  Report Type: Spontaneous
  Country: RU (occurrence: RU)
  Receive Date: 20250331
  Receipt Date: 20250331
  Transmission Date: 20250409
  Serious: Yes (Death)
  Sender: HETERO
  Company Number: RU-AMAROX PHARMA-HET2025RU01485

PATIENT
  Sex: Female
  Weight: 76 kg

DRUGS (16)
  1. DONEPEZIL [Suspect]
     Active Substance: DONEPEZIL
     Indication: Product used for unknown indication
     Route: 065
  2. FLUVOXAMINE [Concomitant]
     Active Substance: FLUVOXAMINE
     Indication: Psychotic disorder
     Route: 065
     Dates: start: 202409, end: 202501
  3. FLUVOXAMINE [Concomitant]
     Active Substance: FLUVOXAMINE
     Indication: Affective disorder
  4. FLUVOXAMINE [Concomitant]
     Active Substance: FLUVOXAMINE
     Indication: Insomnia
  5. FLUVOXAMINE [Concomitant]
     Active Substance: FLUVOXAMINE
     Indication: Anxiety
  6. FLUVOXAMINE [Concomitant]
     Active Substance: FLUVOXAMINE
     Indication: Depression
  7. EXEMESTANE [Concomitant]
     Active Substance: EXEMESTANE
     Indication: Psychotic disorder
     Route: 065
     Dates: start: 202409, end: 202501
  8. PROMAZINE [Concomitant]
     Active Substance: PROMAZINE
     Indication: Insomnia
     Route: 065
  9. PROMAZINE [Concomitant]
     Active Substance: PROMAZINE
     Indication: Agitation
  10. ARIPIPRAZOLE [Concomitant]
     Active Substance: ARIPIPRAZOLE
     Indication: Paranoia
     Route: 065
  11. ARIPIPRAZOLE [Concomitant]
     Active Substance: ARIPIPRAZOLE
     Indication: Hallucination
  12. ARIPIPRAZOLE [Concomitant]
     Active Substance: ARIPIPRAZOLE
     Indication: Psychotic disorder
  13. ARIPIPRAZOLE [Concomitant]
     Active Substance: ARIPIPRAZOLE
     Indication: Hyperkinesia
  14. ARIPIPRAZOLE [Concomitant]
     Active Substance: ARIPIPRAZOLE
     Indication: Abnormal behaviour
  15. ARIPIPRAZOLE [Concomitant]
     Active Substance: ARIPIPRAZOLE
     Indication: Chorea
  16. ARIPIPRAZOLE [Concomitant]
     Active Substance: ARIPIPRAZOLE
     Indication: Ideas of reference

REACTIONS (2)
  - Brain oedema [Fatal]
  - Drug ineffective [Unknown]
